FAERS Safety Report 11108077 (Version 2)
Quarter: 2015Q3

REPORT INFORMATION
  Report Type: Spontaneous
  Country: US (occurrence: US)
  Receive Date: 20150512
  Receipt Date: 20150921
  Transmission Date: 20151125
  Serious: No
  Sender: FDA-Public Use
  Company Number: US-GLAXOSMITHKLINE-A0739763A

PATIENT
  Sex: Male

DRUGS (4)
  1. AVODART [Suspect]
     Active Substance: DUTASTERIDE
     Indication: PROSTATOMEGALY
     Dosage: 0.50 MG, 1D
     Route: 048
     Dates: start: 201111
  2. AVODART [Suspect]
     Active Substance: DUTASTERIDE
     Indication: PRODUCT USED FOR UNKNOWN INDICATION
     Route: 048
     Dates: start: 2006
  3. OMEPRAZOLE. [Concomitant]
     Active Substance: OMEPRAZOLE
  4. LIPITOR [Concomitant]
     Active Substance: ATORVASTATIN CALCIUM

REACTIONS (8)
  - Ejaculation failure [Not Recovered/Not Resolved]
  - Sexual dysfunction [Unknown]
  - Libido decreased [Not Recovered/Not Resolved]
  - Arthralgia [Unknown]
  - Ejaculation disorder [Not Recovered/Not Resolved]
  - Breast pain [Unknown]
  - Muscle spasms [Not Recovered/Not Resolved]
  - Semen volume decreased [Not Recovered/Not Resolved]
